FAERS Safety Report 9203703 (Version 1)
Quarter: 2013Q1

REPORT INFORMATION
  Report Type: Spontaneous
  Country: US (occurrence: None)
  Receive Date: 20120709
  Receipt Date: 20120709
  Transmission Date: 20140127
  Serious: Yes (Hospitalization)
  Sender: FDA-Public Use
  Company Number: PHEH2011US00840

PATIENT
  Age: 64 Year
  Sex: Male
  Weight: 108.6 kg

DRUGS (7)
  1. GLEEVEC (IMATINIB) UNKNOWN [Suspect]
     Indication: SOFT TISSUE CANCER
     Route: 048
     Dates: start: 20110505
  2. ANDROGEL (TESTOSTERONE) [Concomitant]
  3. BYSTOLIC (NEBIVOLOL HYDROCHLORIDE) [Concomitant]
  4. DIOVAN (VALSARTAN) [Concomitant]
  5. ASA (ACETYLSALICYLIC ACID) [Concomitant]
  6. PLAVIX (CLOPIDOGREL SULFATE) [Concomitant]
  7. SIMVASTATIN (SIMVASTATIN) [Concomitant]

REACTIONS (8)
  - Small intestinal obstruction [None]
  - Neuralgia [None]
  - Seasonal allergy [None]
  - Frequent bowel movements [None]
  - Abdominal discomfort [None]
  - Periorbital oedema [None]
  - Nausea [None]
  - Vomiting [None]
